FAERS Safety Report 9394970 (Version 1)
Quarter: 2013Q3

REPORT INFORMATION
  Report Type: Spontaneous
  Country: US (occurrence: US)
  Receive Date: 20130711
  Receipt Date: 20130711
  Transmission Date: 20140515
  Serious: Yes (Life-Threatening, Hospitalization)
  Sender: FDA-Public Use
  Company Number: US-COVIDIEN/TYCO HEALTHCARE/MALLINCKRODT-T201303377

PATIENT
  Age: 51 Year
  Sex: Male

DRUGS (3)
  1. ROXICODONE [Suspect]
     Indication: BACK PAIN
     Dosage: 30 MG,
     Route: 048
  2. OXYCONTIN [Concomitant]
     Dosage: 80 MG, BID
  3. KLONOPIN [Concomitant]
     Dosage: UNK

REACTIONS (3)
  - Road traffic accident [Recovering/Resolving]
  - Constipation [Not Recovered/Not Resolved]
  - Drug ineffective [Unknown]
